FAERS Safety Report 5502693-4 (Version None)
Quarter: 2007Q4

REPORT INFORMATION
  Report Type: 
  Country: None (occurrence: None)
  Receive Date: 20071031
  Receipt Date: 20071023
  Transmission Date: 20080405
  Serious: Yes (Other)
  Sender: FDA-Public Use
  Company Number: FR-WYE-H00779707

PATIENT
  Age: 77 Year
  Sex: Female

DRUGS (2)
  1. OROKEN [Suspect]
     Indication: URINARY TRACT INFECTION
     Route: 048
     Dates: start: 20071005, end: 20071005
  2. FURADANTIN [Concomitant]
     Indication: URINARY TRACT INFECTION
     Dosage: UNKNOWN
     Route: 065
     Dates: end: 20071002

REACTIONS (3)
  - ANGIOEDEMA [None]
  - DRY MOUTH [None]
  - ERYTHEMA [None]
